FAERS Safety Report 5739636-4 (Version None)
Quarter: 2008Q2

REPORT INFORMATION
  Report Type: 
  Country: None (occurrence: None)
  Receive Date: 20080515
  Receipt Date: 20080508
  Transmission Date: 20081010
  Serious: Yes (Other)
  Sender: FDA-Public Use
  Company Number: US-GENENTECH-260064

PATIENT
  Sex: Male
  Weight: 68.934 kg

DRUGS (3)
  1. XOLAIR [Suspect]
     Indication: ASTHMA
     Dosage: 150 MG, Q4W
     Route: 058
     Dates: start: 20080415
  2. ALBUTEROL [Concomitant]
     Indication: ASTHMA
     Dosage: UNK, Q6H
     Route: 048
     Dates: start: 20050701
  3. ZYRTEC [Concomitant]
     Indication: HYPERSENSITIVITY
     Dosage: UNK, Q12H
     Route: 048
     Dates: start: 20050701

REACTIONS (2)
  - LIP SWELLING [None]
  - URTICARIA [None]
